FAERS Safety Report 17718852 (Version 1)
Quarter: 2020Q2

REPORT INFORMATION
  Report Type: Spontaneous
  Country: US (occurrence: US)
  Receive Date: 20200428
  Receipt Date: 20200428
  Transmission Date: 20200714
  Serious: Yes (Hospitalization, Other)
  Sender: FDA-Public Use
  Company Number: US-VELOXIS PHARMACEUTICALS-2020VELUS-000370

PATIENT
  Age: 41 Year
  Sex: Female

DRUGS (18)
  1. PREDNISONE. [Concomitant]
     Active Substance: PREDNISONE
     Indication: RETINAL LASER COAGULATION
     Route: 065
  2. VALGANCICLOVIR. [Concomitant]
     Active Substance: VALGANCICLOVIR
     Indication: CONGENITAL NYSTAGMUS
  3. LAMIVUDINE. [Concomitant]
     Active Substance: LAMIVUDINE
     Indication: RETINAL LASER COAGULATION
  4. ENVARSUS XR [Suspect]
     Active Substance: TACROLIMUS
     Indication: RETINAL LASER COAGULATION
     Route: 065
  5. ENVARSUS XR [Suspect]
     Active Substance: TACROLIMUS
     Indication: CONGENITAL NYSTAGMUS
  6. ASPIRIN. [Concomitant]
     Active Substance: ASPIRIN
     Indication: RETINAL LASER COAGULATION
  7. ATORVASTATIN [Concomitant]
     Active Substance: ATORVASTATIN
     Indication: RETINAL LASER COAGULATION
     Route: 065
  8. MYCOPHENOLATE MOFETIL. [Concomitant]
     Active Substance: MYCOPHENOLATE MOFETIL
     Indication: CONGENITAL NYSTAGMUS
  9. ABACAVIR. [Concomitant]
     Active Substance: ABACAVIR
     Indication: RETINAL LASER COAGULATION
     Route: 065
  10. MYCOPHENOLATE MOFETIL. [Concomitant]
     Active Substance: MYCOPHENOLATE MOFETIL
     Indication: RETINAL LASER COAGULATION
     Route: 065
  11. VALGANCICLOVIR. [Concomitant]
     Active Substance: VALGANCICLOVIR
     Indication: RETINAL LASER COAGULATION
     Route: 065
  12. PREDNISONE. [Concomitant]
     Active Substance: PREDNISONE
     Indication: CONGENITAL NYSTAGMUS
  13. ABACAVIR. [Concomitant]
     Active Substance: ABACAVIR
     Indication: CONGENITAL NYSTAGMUS
  14. ATORVASTATIN [Concomitant]
     Active Substance: ATORVASTATIN
     Indication: CONGENITAL NYSTAGMUS
  15. LAMIVUDINE. [Concomitant]
     Active Substance: LAMIVUDINE
     Indication: CONGENITAL NYSTAGMUS
  16. ASPIRIN. [Concomitant]
     Active Substance: ASPIRIN
     Indication: CONGENITAL NYSTAGMUS
  17. DOLUTEGRAVIR [Concomitant]
     Active Substance: DOLUTEGRAVIR
     Indication: RETINAL LASER COAGULATION
     Route: 065
  18. DOLUTEGRAVIR [Concomitant]
     Active Substance: DOLUTEGRAVIR
     Indication: CONGENITAL NYSTAGMUS

REACTIONS (4)
  - Vomiting [Unknown]
  - Off label use [Unknown]
  - Optic neuropathy [Unknown]
  - Nausea [Unknown]
